FAERS Safety Report 7629006-6 (Version None)
Quarter: 2011Q3

REPORT INFORMATION
  Report Type: 
  Country: None (occurrence: None)
  Receive Date: 20110722
  Receipt Date: 20110331
  Transmission Date: 20111222
  Serious: No
  Sender: FDA-Public Use
  Company Number: US-BAYER-2011-029108

PATIENT
  Sex: Male
  Weight: 86.168 kg

DRUGS (1)
  1. ALEVE (CAPLET) [Suspect]
     Indication: BACK PAIN
     Dosage: 1.5 DF, ONCE
     Route: 048
     Dates: start: 20110330

REACTIONS (2)
  - RASH [None]
  - URTICARIA [None]
